FAERS Safety Report 6110217-6 (Version None)
Quarter: 2009Q1

REPORT INFORMATION
  Report Type: 
  Country: None (occurrence: None)
  Receive Date: 20090310
  Receipt Date: 20090302
  Transmission Date: 20090719
  Serious: Yes (Life-Threatening)
  Sender: FDA-Public Use
  Company Number: DE-AVENTIS-200910582DE

PATIENT
  Age: 76 Year
  Sex: Male

DRUGS (7)
  1. AMARYL [Suspect]
     Route: 048
     Dates: start: 20071201, end: 20081126
  2. DELIX                              /00885601/ [Suspect]
     Route: 048
  3. ASPIRIN [Suspect]
     Indication: PROPHYLAXIS
     Route: 048
     Dates: end: 20081126
  4. METFORMIN HCL [Suspect]
     Route: 048
     Dates: start: 20071201, end: 20081126
  5. LOCOL [Suspect]
     Route: 048
     Dates: end: 20081125
  6. BELOC ZOK [Concomitant]
     Dosage: DOSE: 1-0-1/2
     Route: 048
  7. BERLTHYROX [Concomitant]
     Indication: HYPOTHYROIDISM
     Route: 048

REACTIONS (4)
  - HYPOGLYCAEMIA [None]
  - RENAL FAILURE ACUTE [None]
  - RHABDOMYOLYSIS [None]
  - SYNCOPE [None]
